FAERS Safety Report 18628113 (Version 1)
Quarter: 2020Q4

REPORT INFORMATION
  Report Type: Spontaneous
  Country: US (occurrence: US)
  Receive Date: 20201217
  Receipt Date: 20201217
  Transmission Date: 20210114
  Serious: Yes (Other)
  Sender: FDA-Public Use
  Company Number: None

PATIENT
  Age: 36 Year
  Sex: Female
  Weight: 60.75 kg

DRUGS (4)
  1. ADDERALL XR [Concomitant]
     Active Substance: AMPHETAMINE ASPARTATE\AMPHETAMINE SULFATE\DEXTROAMPHETAMINE SACCHARATE\DEXTROAMPHETAMINE SULFATE
  2. MULTIVITAMIN [Concomitant]
     Active Substance: VITAMINS
  3. CYCLOBENZAPRINE. [Concomitant]
     Active Substance: CYCLOBENZAPRINE
  4. LAMOTRIGINE. [Suspect]
     Active Substance: LAMOTRIGINE
     Indication: MIGRAINE
     Dosage: ?          QUANTITY:1 TABLET(S);?
     Route: 048

REACTIONS (11)
  - Feeling abnormal [None]
  - Paraesthesia [None]
  - Disorientation [None]
  - Withdrawal syndrome [None]
  - Drug ineffective [None]
  - Feeling drunk [None]
  - Drug intolerance [None]
  - Hypersomnia [None]
  - Vertigo [None]
  - Mood swings [None]
  - Alopecia [None]
